FAERS Safety Report 20421006 (Version 1)
Quarter: 2022Q1

REPORT INFORMATION
  Report Type: Spontaneous
  Country: US (occurrence: US)
  Receive Date: 20220203
  Receipt Date: 20220203
  Transmission Date: 20220423
  Serious: Yes (Death, Hospitalization, Other)
  Sender: FDA-Public Use
  Company Number: US-SANOFI-00951535

PATIENT
  Age: 57 Year
  Sex: Female

DRUGS (3)
  1. AUBAGIO [Suspect]
     Active Substance: TERIFLUNOMIDE
     Indication: Multiple sclerosis
     Dosage: UNK
     Dates: start: 2021, end: 202201
  2. LEMTRADA [Concomitant]
     Active Substance: ALEMTUZUMAB
  3. NATALIZUMAB [Concomitant]
     Active Substance: NATALIZUMAB
     Dosage: UNK
     Dates: start: 201904

REACTIONS (7)
  - Pulmonary fibrosis [Fatal]
  - Dyspnoea [Fatal]
  - Dyspnoea exertional [Fatal]
  - Pulmonary function test decreased [Fatal]
  - Pneumonia [Fatal]
  - Withdrawal of life support [Fatal]
  - Interstitial lung disease [Fatal]

NARRATIVE: CASE EVENT DATE: 20211101
